FAERS Safety Report 10022165 (Version 1)
Quarter: 2014Q1

REPORT INFORMATION
  Report Type: Report from Study
  Country: AU (occurrence: AU)
  Receive Date: 20140319
  Receipt Date: 20140319
  Transmission Date: 20141002
  Serious: Yes (Other)
  Sender: FDA-Public Use
  Company Number: AU-AMGEN-AUSCT2014017538

PATIENT
  Age: 27 Year
  Sex: Female

DRUGS (1)
  1. DENOSUMAB [Suspect]
     Indication: BREAST CANCER
     Dosage: 120 MG, UNK
     Route: 058

REACTIONS (1)
  - Pain in jaw [Unknown]
